FAERS Safety Report 21209978 (Version 1)
Quarter: 2022Q3

REPORT INFORMATION
  Report Type: Report from Study
  Country: US (occurrence: US)
  Receive Date: 20220813
  Receipt Date: 20220813
  Transmission Date: 20221027
  Serious: Yes (Other)
  Sender: FDA-Public Use
  Company Number: US-ABBVIE-22K-163-4439741-00

PATIENT
  Sex: Female

DRUGS (1)
  1. RINVOQ [Suspect]
     Active Substance: UPADACITINIB
     Indication: Rheumatoid arthritis
     Route: 048
     Dates: start: 202205, end: 2022

REACTIONS (10)
  - Nerve compression [Unknown]
  - Gastrooesophageal reflux disease [Recovering/Resolving]
  - Abdominal distension [Unknown]
  - Hypertension [Unknown]
  - Blood glucose increased [Unknown]
  - Arthritis [Unknown]
  - Joint stiffness [Unknown]
  - Abdominal distension [Recovering/Resolving]
  - General physical condition abnormal [Unknown]
  - Pain [Not Recovered/Not Resolved]

NARRATIVE: CASE EVENT DATE: 20220101
